FAERS Safety Report 25952431 (Version 1)
Quarter: 2025Q4

REPORT INFORMATION
  Report Type: Spontaneous
  Country: US (occurrence: US)
  Receive Date: 20251023
  Receipt Date: 20251023
  Transmission Date: 20260118
  Serious: No
  Sender: CALLIDITAS THERAPEUTICS AB
  Company Number: US-Calliditas-2025CAL02254

PATIENT
  Age: 55 Year
  Sex: Male

DRUGS (6)
  1. TARPEYO [Suspect]
     Active Substance: BUDESONIDE
     Indication: IgA nephropathy
     Route: 048
     Dates: start: 20250703
  2. ATOVAQUONE [Concomitant]
     Active Substance: ATOVAQUONE
  3. LOSARTAN [Concomitant]
     Active Substance: LOSARTAN
  4. METHYLPREDNISOLONE [Concomitant]
     Active Substance: METHYLPREDNISOLONE
  5. PEPCID [Concomitant]
     Active Substance: FAMOTIDINE
  6. ROSUVASTATIN [Concomitant]
     Active Substance: ROSUVASTATIN

REACTIONS (6)
  - Muscle spasms [Unknown]
  - Middle insomnia [Unknown]
  - Dry mouth [Unknown]
  - Product dose omission issue [Recovered/Resolved]
  - Blood potassium decreased [Unknown]
  - Blood pressure increased [Unknown]
